FAERS Safety Report 7339599-4 (Version None)
Quarter: 2011Q1

REPORT INFORMATION
  Report Type: 
  Country: None (occurrence: None)
  Receive Date: 20110308
  Receipt Date: 20110304
  Transmission Date: 20110831
  Serious: Yes (Hospitalization)
  Sender: FDA-Public Use
  Company Number: US-ABBOTT-11P-163-0702043-00

PATIENT
  Sex: Female
  Weight: 88.984 kg

DRUGS (16)
  1. HUMIRA [Suspect]
     Indication: RHEUMATOID ARTHRITIS
  2. SIMVASTATIN [Concomitant]
     Indication: BLOOD CHOLESTEROL INCREASED
  3. BUSPAR [Concomitant]
     Indication: ANXIETY
  4. METFORMIN [Concomitant]
     Indication: DIABETES MELLITUS
  5. FLUOXETINE [Concomitant]
     Indication: DEPRESSION
  6. PROTONIX [Concomitant]
     Indication: GASTROOESOPHAGEAL REFLUX DISEASE
  7. FOLIC ACID [Concomitant]
     Indication: VITAMIN SUPPLEMENTATION
  8. METHOTREXATE [Concomitant]
     Indication: RHEUMATOID ARTHRITIS
  9. HUMIRA [Suspect]
     Indication: PSORIASIS
     Route: 058
     Dates: start: 20090101, end: 20101101
  10. NOVOLIN 70/30 [Concomitant]
     Indication: DIABETES MELLITUS
  11. POTASSIUM [Concomitant]
     Indication: MINERAL SUPPLEMENTATION
  12. GLIPIZIDE [Concomitant]
     Indication: DIABETES MELLITUS
  13. HUMIRA [Suspect]
     Indication: PSORIATIC ARTHROPATHY
  14. LISINOPRIL [Concomitant]
     Indication: HYPERTENSION
  15. NORVASC [Concomitant]
     Indication: HYPERTENSION
  16. XANAX [Concomitant]
     Indication: ANXIETY

REACTIONS (5)
  - ANXIETY [None]
  - PSORIASIS [None]
  - EMBOLIC STROKE [None]
  - CHEST PAIN [None]
  - HEADACHE [None]
